FAERS Safety Report 7087810-X (Version None)
Quarter: 2010Q4

REPORT INFORMATION
  Report Type: 
  Country: None (occurrence: None)
  Receive Date: 20101108
  Receipt Date: 20101028
  Transmission Date: 20110411
  Serious: Yes (Hospitalization, Other)
  Sender: FDA-Public Use
  Company Number: JP-JNJFOC-20100707530

PATIENT
  Sex: Male
  Weight: 62 kg

DRUGS (22)
  1. REMICADE [Suspect]
     Indication: RHEUMATOID ARTHRITIS
     Route: 042
  2. REMICADE [Suspect]
     Route: 042
  3. REMICADE [Suspect]
     Route: 042
  4. REMICADE [Suspect]
     Route: 042
  5. REMICADE [Suspect]
     Route: 042
  6. REMICADE [Suspect]
     Dosage: 6TH INFUSION
     Route: 042
  7. METHOTREXATE [Suspect]
     Indication: RHEUMATOID ARTHRITIS
     Route: 048
  8. PREDNISOLONE [Concomitant]
  9. FOLIAMIN [Concomitant]
     Indication: PROPHYLAXIS
     Route: 048
  10. MUCODYNE [Concomitant]
     Indication: BRONCHITIS CHRONIC
     Route: 048
  11. CLARITHROMYCIN [Concomitant]
     Indication: BRONCHITIS CHRONIC
     Route: 048
  12. PYRIDOXAL PHOSPHATE [Concomitant]
     Indication: PROPHYLAXIS
     Route: 048
  13. CELECOX [Concomitant]
     Indication: RHEUMATOID ARTHRITIS
     Route: 048
  14. MESADORIN-S [Concomitant]
     Indication: PROPHYLAXIS
     Route: 048
  15. PARIET [Concomitant]
     Indication: PROPHYLAXIS
     Route: 048
  16. BONALON [Concomitant]
     Indication: PROPHYLAXIS
     Route: 048
  17. CALONAL [Concomitant]
     Indication: PROPHYLAXIS
     Route: 048
  18. FAMOTIDINE [Concomitant]
     Indication: PROPHYLAXIS
     Route: 048
  19. ALLEGRA [Concomitant]
     Indication: PROPHYLAXIS
     Route: 048
  20. BAKTAR [Concomitant]
     Indication: PROPHYLAXIS
     Dosage: 2 TABS
     Route: 048
  21. NEOISCOTIN [Concomitant]
     Indication: ANTIBIOTIC PROPHYLAXIS
     Route: 048
  22. NEOISCOTIN [Concomitant]
     Route: 048

REACTIONS (1)
  - GASTRIC CANCER [None]
